FAERS Safety Report 20145043 (Version 1)
Quarter: 2021Q4

REPORT INFORMATION
  Report Type: Spontaneous
  Country: US (occurrence: US)
  Receive Date: 20211203
  Receipt Date: 20211203
  Transmission Date: 20220303
  Serious: Yes (Hospitalization, Other)
  Sender: FDA-Public Use
  Company Number: US-MLMSERVICE-20211116-3222567-1

PATIENT
  Age: 29 Year
  Sex: Female

DRUGS (9)
  1. OLANZAPINE [Suspect]
     Active Substance: OLANZAPINE
     Indication: Psychotic disorder
     Dosage: 5 MG, DAILY
     Route: 065
  2. OLANZAPINE [Suspect]
     Active Substance: OLANZAPINE
     Indication: Mania
     Dosage: UNK UNK, PRN (ADDITIONAL AS NEEDED OLANZAPINE DOSES)
     Route: 065
  3. OLANZAPINE [Suspect]
     Active Substance: OLANZAPINE
     Dosage: UNK UNK, UNKNOWN
     Route: 065
  4. OLANZAPINE [Suspect]
     Active Substance: OLANZAPINE
     Dosage: 10 MG, BID
     Route: 065
  5. OLANZAPINE [Suspect]
     Active Substance: OLANZAPINE
     Dosage: UNK UNK, UNKNOWN (DOSE DECREASED)
     Route: 065
  6. LITHIUM [Concomitant]
     Active Substance: LITHIUM
     Indication: Psychotic disorder
     Dosage: 900 MG, BID
     Route: 065
  7. LITHIUM [Concomitant]
     Active Substance: LITHIUM
     Indication: Mania
  8. RISPERIDONE [Concomitant]
     Active Substance: RISPERIDONE
     Indication: Psychotic disorder
     Dosage: 6 MG, DAILY
     Route: 065
  9. RISPERIDONE [Concomitant]
     Active Substance: RISPERIDONE
     Indication: Mania

REACTIONS (2)
  - Aggression [Recovered/Resolved]
  - Agitation [Recovered/Resolved]
